FAERS Safety Report 13176510 (Version 1)
Quarter: 2017Q1

REPORT INFORMATION
  Report Type: Spontaneous
  Country: FR (occurrence: FR)
  Receive Date: 20170201
  Receipt Date: 20170201
  Transmission Date: 20170428
  Serious: Yes (Other)
  Sender: FDA-Public Use
  Company Number: FR-TEVA-732945ROM

PATIENT
  Sex: Male

DRUGS (7)
  1. PIROXICAM TEVA 20 MG/1 ML [Suspect]
     Active Substance: PIROXICAM
     Dosage: 1 DOSAGE FORMS DAILY;
     Route: 030
     Dates: start: 20111129
  2. DOLIPRANE [Concomitant]
     Active Substance: ACETAMINOPHEN
  3. PIROXICAM TEVA 20 MG/1 ML [Suspect]
     Active Substance: PIROXICAM
     Dosage: 2 DOSAGE FORMS DAILY;
     Route: 030
     Dates: start: 20141226, end: 20141228
  4. PIROXICAM TEVA 20 MG/1 ML [Suspect]
     Active Substance: PIROXICAM
     Dosage: 1 DOSAGE FORMS DAILY;
     Route: 030
     Dates: start: 20141208
  5. ESOMEPRAZOLE [Concomitant]
     Active Substance: ESOMEPRAZOLE
  6. PIROXICAM TEVA 20 MG/1 ML [Suspect]
     Active Substance: PIROXICAM
     Indication: BACK PAIN
     Dosage: 1 DOSAGE FORMS DAILY;
     Route: 030
     Dates: start: 201106
  7. KETOPROFEN. [Concomitant]
     Active Substance: KETOPROFEN
     Route: 048

REACTIONS (5)
  - Neuralgia [Not Recovered/Not Resolved]
  - Sensory disturbance [Not Recovered/Not Resolved]
  - Burning sensation [Not Recovered/Not Resolved]
  - Gait disturbance [Not Recovered/Not Resolved]
  - Muscle disorder [Not Recovered/Not Resolved]

NARRATIVE: CASE EVENT DATE: 2017
